FAERS Safety Report 19660053 (Version 1)
Quarter: 2021Q3

REPORT INFORMATION
  Report Type: Spontaneous
  Country: US (occurrence: US)
  Receive Date: 20210804
  Receipt Date: 20210804
  Transmission Date: 20211014
  Serious: No
  Sender: FDA-Public Use
  Company Number: None

PATIENT
  Age: 85 Year
  Sex: Female
  Weight: 47.25 kg

DRUGS (19)
  1. PROBIOTIC [Concomitant]
     Active Substance: PROBIOTICS NOS
  2. FEXOFENADINE [Concomitant]
     Active Substance: FEXOFENADINE HYDROCHLORIDE
  3. B12 100 MG [Concomitant]
  4. COENZYME Q10 [Concomitant]
     Active Substance: DIETARY SUPPLEMENT\UBIDECARENONE
  5. NA FLORIDE [Concomitant]
  6. AMLODIPINE [Concomitant]
     Active Substance: AMLODIPINE BESYLATE
  7. BIOTIN [Concomitant]
     Active Substance: BIOTIN
  8. VITAMIN D3 [Concomitant]
     Active Substance: CHOLECALCIFEROL
  9. SPIRONOLACTONE. [Suspect]
     Active Substance: SPIRONOLACTONE
     Indication: ALOPECIA
     Route: 048
     Dates: start: 20210113, end: 20210415
  10. METAPROLOL SUCCINATE [Concomitant]
     Active Substance: METOPROLOL SUCCINATE
  11. LOVASTATIN. [Concomitant]
     Active Substance: LOVASTATIN
  12. GLUCOSAMINE?CHONDROITIN [Concomitant]
     Active Substance: CHONDROITIN SULFATE (BOVINE)\GLUCOSAMINE SULFATE
  13. CALCIUM D3 [Concomitant]
     Active Substance: CALCIUM\CHOLECALCIFEROL
  14. ASPIRIN. [Concomitant]
     Active Substance: ASPIRIN
  15. B6 [Concomitant]
     Active Substance: PYRIDOXINE HYDROCHLORIDE
  16. VITAMIN C [Suspect]
     Active Substance: ASCORBIC ACID
  17. MELATONIN [Concomitant]
     Active Substance: MELATONIN
  18. FISH OIL [Concomitant]
     Active Substance: FISH OIL
  19. PAIN CREAM[M.SALICYLATE30%/MENTHOL 10%] [Concomitant]

REACTIONS (2)
  - Therapy change [None]
  - Glomerular filtration rate decreased [None]

NARRATIVE: CASE EVENT DATE: 20210413
